FAERS Safety Report 11131467 (Version 1)
Quarter: 2015Q2

REPORT INFORMATION
  Report Type: Spontaneous
  Country: US (occurrence: None)
  Receive Date: 20150521
  Receipt Date: 20150521
  Transmission Date: 20150821
  Serious: Yes (Other)
  Sender: FDA-Public Use
  Company Number: None

PATIENT
  Age: 59 Year
  Sex: Female
  Weight: 52.16 kg

DRUGS (9)
  1. NEURONTIN [Concomitant]
     Active Substance: GABAPENTIN
  2. ADVAIR HFA [Concomitant]
     Active Substance: FLUTICASONE PROPIONATE\SALMETEROL XINAFOATE
  3. DAILY MULTI-VITAMIN [Concomitant]
  4. ALBUTEROL SULFATE INHALATION SOLUTION [Concomitant]
     Active Substance: ALBUTEROL SULFATE
  5. SYMBICORT [Suspect]
     Active Substance: BUDESONIDE\FORMOTEROL FUMARATE DIHYDRATE
     Indication: MULTIPLE ALLERGIES
     Dates: start: 20150310, end: 20150316
  6. PROAIR HFA [Concomitant]
     Active Substance: ALBUTEROL SULFATE
  7. SYMBICORT [Suspect]
     Active Substance: BUDESONIDE\FORMOTEROL FUMARATE DIHYDRATE
     Indication: COUGH
     Dates: start: 20150310, end: 20150316
  8. ENSURE [Concomitant]
     Active Substance: AMINO ACIDS\DEXTROSE\ELECTROLYTES NOS\SOYBEAN OIL\VITAMINS
  9. SYMBICORT [Suspect]
     Active Substance: BUDESONIDE\FORMOTEROL FUMARATE DIHYDRATE
     Indication: ASTHMA
     Dates: start: 20150310, end: 20150316

REACTIONS (3)
  - Heart rate increased [None]
  - Heart rate irregular [None]
  - Chest pain [None]

NARRATIVE: CASE EVENT DATE: 20150316
